FAERS Safety Report 9265956 (Version 1)
Quarter: 2013Q2

REPORT INFORMATION
  Report Type: Spontaneous
  Country: US (occurrence: US)
  Receive Date: 20130501
  Receipt Date: 20130501
  Transmission Date: 20140414
  Serious: Yes (Other)
  Sender: FDA-Public Use
  Company Number: US-FRI-1000044861

PATIENT
  Sex: Male

DRUGS (8)
  1. TEFLARO [Suspect]
     Indication: STAPHYLOCOCCAL INFECTION
     Dosage: 1200 MG
     Route: 042
  2. TEFLARO [Suspect]
     Indication: CELLULITIS
     Dosage: 800 MG
     Route: 042
     Dates: start: 20130424
  3. CUBICIN [Suspect]
     Indication: STAPHYLOCOCCAL BACTERAEMIA
     Route: 042
  4. CUBICIN [Suspect]
     Indication: CELLULITIS
  5. VANCOMYCIN [Suspect]
     Indication: STAPHYLOCOCCAL INFECTION
  6. VANCOMYCIN [Suspect]
     Indication: CELLULITIS
  7. GENTAMYCIN [Suspect]
     Indication: STAPHYLOCOCCAL INFECTION
  8. GENTAMYCIN [Suspect]
     Indication: CELLULITIS

REACTIONS (1)
  - Renal impairment [Unknown]
